FAERS Safety Report 7828218-6 (Version None)
Quarter: 2011Q4

REPORT INFORMATION
  Report Type: 
  Country: None (occurrence: None)
  Receive Date: 20111020
  Receipt Date: 20111011
  Transmission Date: 20120403
  Serious: Yes (Hospitalization)
  Sender: FDA-Public Use
  Company Number: JP-SANOFI-AVENTIS-2011SA067063

PATIENT
  Age: 62 Year
  Sex: Male
  Weight: 65 kg

DRUGS (11)
  1. BEZAFIBRATE [Concomitant]
     Route: 048
     Dates: start: 20100917, end: 20101029
  2. ASPIRIN [Concomitant]
     Route: 048
     Dates: start: 20100311, end: 20100311
  3. LANSOPRAZOLE [Concomitant]
     Route: 048
     Dates: start: 20100312
  4. HEPARIN [Concomitant]
     Dosage: INTRAVENOUS INJECTION
     Route: 042
     Dates: start: 20100311, end: 20100311
  5. CLOPIDOGREL BISULFATE [Suspect]
     Route: 065
     Dates: start: 20100311
  6. CRESTOR [Concomitant]
     Route: 048
     Dates: start: 20100312, end: 20100317
  7. CLOPIDOGREL BISULFATE [Suspect]
     Route: 065
     Dates: start: 20100312, end: 20101111
  8. ASPIRIN [Concomitant]
     Route: 048
     Dates: start: 20100312
  9. BISOPROLOL FUMARATE [Concomitant]
     Route: 048
     Dates: start: 20100312
  10. MICARDIS [Concomitant]
     Route: 048
     Dates: start: 20100312
  11. ACTOS [Concomitant]
     Route: 048
     Dates: start: 20100430

REACTIONS (2)
  - ANGINA PECTORIS [None]
  - INTERSTITIAL LUNG DISEASE [None]
